FAERS Safety Report 16941768 (Version 1)
Quarter: 2019Q4

REPORT INFORMATION
  Report Type: Spontaneous
  Country: US (occurrence: US)
  Receive Date: 20191020
  Receipt Date: 20191020
  Transmission Date: 20200122
  Serious: No
  Sender: FDA-Public Use
  Company Number: None

PATIENT
  Age: 73 Year
  Sex: Female
  Weight: 77.4 kg

DRUGS (1)
  1. LOSARTAN 50 MG HYDROCHLOROTHIAZIDE 12.5 MG TABLETS [Suspect]
     Active Substance: HYDROCHLOROTHIAZIDE\LOSARTAN POTASSIUM
     Indication: HYPERTENSION
     Dosage: ?          QUANTITY:100 TABLET(S);?
     Route: 048
     Dates: start: 20190730

REACTIONS (3)
  - Dyspepsia [None]
  - Abdominal discomfort [None]
  - Insomnia [None]

NARRATIVE: CASE EVENT DATE: 20190715
